FAERS Safety Report 11004178 (Version 2)
Quarter: 2015Q3

REPORT INFORMATION
  Report Type: Spontaneous
  Country: IT (occurrence: IT)
  Receive Date: 20150409
  Receipt Date: 20150820
  Transmission Date: 20151125
  Serious: Yes (Hospitalization)
  Sender: FDA-Public Use
  Company Number: IT-SUN PHARMACEUTICAL INDUSTRIES LTD-2015RR-95240

PATIENT

DRUGS (2)
  1. PARACETAMOL [Suspect]
     Active Substance: ACETAMINOPHEN
     Indication: PYREXIA
     Dosage: 1 UNIT, TOTAL
     Route: 048
     Dates: start: 20150309, end: 20150309
  2. ASPIRINA [Suspect]
     Active Substance: ASPIRIN
     Indication: PYREXIA
     Dosage: 1 UNIT, TOTAL
     Route: 048
     Dates: start: 20150309, end: 20150309

REACTIONS (1)
  - Erythema multiforme [Recovering/Resolving]

NARRATIVE: CASE EVENT DATE: 20150310
